FAERS Safety Report 18284090 (Version 5)
Quarter: 2020Q4

REPORT INFORMATION
  Report Type: Spontaneous
  Country: US (occurrence: US)
  Receive Date: 20200918
  Receipt Date: 20201027
  Transmission Date: 20210113
  Serious: Yes (Other)
  Sender: FDA-Public Use
  Company Number: US-PFIZER INC-2020357524

PATIENT
  Age: 71 Year
  Sex: Male
  Weight: 66.22 kg

DRUGS (6)
  1. ATORVASTATIN [Concomitant]
     Active Substance: ATORVASTATIN
     Indication: BLOOD CHOLESTEROL INCREASED
     Dosage: UNK
  2. DILANTIN [Suspect]
     Active Substance: PHENYTOIN
     Indication: SEIZURE
     Dosage: 130 MG, 2X/DAY (100MG CAPSULE AND 30MG CAPSULE IN THE MORNING AND AT NIGHT)
     Dates: start: 1978
  3. DILANTIN [Suspect]
     Active Substance: PHENYTOIN
     Dosage: 300 MG, DAILY (ALTERNATING DAILY DOSES OF 3-100MG CAPSULES ONE DAY + 2-100MG CAPSULES THE NEXT DAY)
     Dates: start: 20200929
  4. DILANTIN [Suspect]
     Active Substance: PHENYTOIN
     Dosage: 30 MG (DILANTIN 30 MG)
  5. DILANTIN [Suspect]
     Active Substance: PHENYTOIN
     Dosage: 130 MG, 2X/DAY (100MG CAPSULE AND 30MG CAPSULE IN THE MORNING AND AT NIGHT)
     Dates: end: 20200928
  6. DILANTIN [Suspect]
     Active Substance: PHENYTOIN
     Dosage: 200 MG, DAILY (ALTERNATING DAILY DOSES OF 3-100MG CAPSULES ONE DAY + 2-100MG CAPSULES THE NEXT DAY)
     Dates: start: 20200929

REACTIONS (8)
  - Suicidal ideation [Unknown]
  - Anxiety [Unknown]
  - Aversion [Unknown]
  - Limb discomfort [Unknown]
  - Body height decreased [Unknown]
  - Gait disturbance [Unknown]
  - Intentional product misuse [Unknown]
  - Product prescribing error [Unknown]

NARRATIVE: CASE EVENT DATE: 2020
